FAERS Safety Report 7028179-6 (Version None)
Quarter: 2010Q4

REPORT INFORMATION
  Report Type: 
  Country: None (occurrence: None)
  Receive Date: 20101005
  Receipt Date: 20100923
  Transmission Date: 20110411
  Serious: No
  Sender: FDA-Public Use
  Company Number: US-B.I. PHARMACEUTICALS,INC./RIDGEFIELD-2010-BP-10811BP

PATIENT
  Age: 72 Year
  Sex: Female

DRUGS (3)
  1. CLONIDINE HCL [Suspect]
     Indication: HYPERTENSION
     Dosage: 0.3 MG
     Dates: start: 20000101, end: 20100819
  2. CLONIDINE HCL [Suspect]
     Dosage: 0.6 MG
     Dates: start: 20100819, end: 20100909
  3. CLONIDINE HCL [Suspect]
     Dosage: 0.3 MG
     Dates: start: 20100909

REACTIONS (9)
  - BLOOD PRESSURE ABNORMAL [None]
  - CHRONIC OBSTRUCTIVE PULMONARY DISEASE [None]
  - CONSTIPATION [None]
  - DRY MOUTH [None]
  - DYSPNOEA [None]
  - HEART RATE INCREASED [None]
  - NASAL DRYNESS [None]
  - PSYCHOMOTOR HYPERACTIVITY [None]
  - WEIGHT DECREASED [None]
